FAERS Safety Report 19294653 (Version 1)
Quarter: 2021Q2

REPORT INFORMATION
  Report Type: Spontaneous
  Country: US (occurrence: US)
  Receive Date: 20210524
  Receipt Date: 20210524
  Transmission Date: 20210717
  Serious: Yes (Other)
  Sender: FDA-Public Use
  Company Number: None

PATIENT
  Age: 67 Year
  Sex: Female

DRUGS (16)
  1. FISH OIL [Concomitant]
     Active Substance: FISH OIL
  2. ZINC. [Concomitant]
     Active Substance: ZINC
  3. AMITRIPTYLINE [Concomitant]
     Active Substance: AMITRIPTYLINE
  4. HIGH B COMPLEX [Concomitant]
  5. DILTIAZEM. [Concomitant]
     Active Substance: DILTIAZEM
  6. ADVAIR HFA [Concomitant]
     Active Substance: FLUTICASONE PROPIONATE\SALMETEROL XINAFOATE
  7. METOPROLOL. [Concomitant]
     Active Substance: METOPROLOL
  8. TUMERIC CUMIN [Concomitant]
  9. OXYGENATION MACHINE [Concomitant]
  10. MAGNESIUM [Concomitant]
     Active Substance: MAGNESIUM
  11. OTEZLA [Suspect]
     Active Substance: APREMILAST
     Indication: PSORIATIC ARTHROPATHY
     Route: 048
     Dates: start: 20210513, end: 20210524
  12. BIPAP MACHINE [Concomitant]
  13. PROAIR INHALER [Concomitant]
     Active Substance: ALBUTEROL SULFATE
  14. CALCIUM [Concomitant]
     Active Substance: CALCIUM
  15. PILOCARPINE. [Concomitant]
     Active Substance: PILOCARPINE
  16. VITAMIN D3 [Concomitant]
     Active Substance: CHOLECALCIFEROL

REACTIONS (7)
  - Ear infection [None]
  - Cough [None]
  - Abdominal discomfort [None]
  - Sinusitis [None]
  - Upper respiratory tract infection [None]
  - Tinnitus [None]
  - Diarrhoea [None]

NARRATIVE: CASE EVENT DATE: 20210516
